FAERS Safety Report 8909929 (Version 2)
Quarter: 2012Q4

REPORT INFORMATION
  Report Type: 
  Country: US (occurrence: US)
  Receive Date: 20121115
  Receipt Date: 20121228
  Transmission Date: 20130627
  Serious: No
  Sender: FDA-Public Use
  Company Number: US-PFIZER INC-2012283053

PATIENT
  Age: 88 Year
  Sex: Male
  Weight: 87 kg

DRUGS (6)
  1. NITROSTAT [Suspect]
     Indication: CARDIAC DISORDER
     Dosage: Unknown dose; as needed
     Route: 048
  2. METOPROLOL [Concomitant]
     Dosage: 50 mg, UNK
  3. PENTOXIFYLLINE [Concomitant]
     Dosage: 400 mg, UNK
  4. PLAVIX [Concomitant]
     Dosage: 75 mg, UNK
  5. ESOMEPRAZOLE [Concomitant]
     Dosage: 20 mg, UNK
  6. DILTIAZEM [Concomitant]
     Dosage: 240 mg, UNK

REACTIONS (1)
  - Drug ineffective [Unknown]
